FAERS Safety Report 18466899 (Version 1)
Quarter: 2020Q4

REPORT INFORMATION
  Report Type: Report from Study
  Country: US (occurrence: US)
  Receive Date: 20201105
  Receipt Date: 20201105
  Transmission Date: 20210114
  Serious: Yes (Death)
  Sender: FDA-Public Use
  Company Number: US-PFIZER INC-2020425386

PATIENT
  Age: 67 Year
  Sex: Female

DRUGS (2)
  1. ALCOHOL. [Suspect]
     Active Substance: ALCOHOL
     Dosage: UNK
  2. ALPRAZOLAM. [Suspect]
     Active Substance: ALPRAZOLAM
     Dosage: UNK

REACTIONS (10)
  - Haemolysis [Fatal]
  - Serotonin syndrome [Fatal]
  - Hallucination [Fatal]
  - Hyperreflexia [Fatal]
  - Acute lung injury [Fatal]
  - Tremor [Fatal]
  - Brain death [Fatal]
  - Toxicity to various agents [Fatal]
  - Bradycardia [Fatal]
  - Agitation [Fatal]
